FAERS Safety Report 5010847-9 (Version None)
Quarter: 2006Q2

REPORT INFORMATION
  Report Type: 
  Country: None (occurrence: None)
  Receive Date: 20060525
  Receipt Date: 20051114
  Transmission Date: 20061013
  Serious: Yes (Hospitalization, Disabling, Other)
  Sender: FDA-Public Use
  Company Number: IE-GLAXOSMITHKLINE-B0400559A

PATIENT
  Age: 54 Year
  Sex: Female

DRUGS (6)
  1. AVANDIA [Suspect]
     Indication: DIABETES MELLITUS
     Route: 048
     Dates: start: 20031223, end: 20040122
  2. ASPIRIN [Concomitant]
     Route: 048
     Dates: start: 20031201
  3. MIXTARD 50/50 [Concomitant]
  4. ALDACTONE [Concomitant]
  5. DUPHALAC [Concomitant]
  6. TRITACE [Concomitant]
     Route: 065

REACTIONS (17)
  - ABASIA [None]
  - DIZZINESS [None]
  - DYSPNOEA [None]
  - FALL [None]
  - FLUID RETENTION [None]
  - GOITRE [None]
  - HAEMORRHAGE [None]
  - HEPATIC ENZYME INCREASED [None]
  - HEPATIC FAILURE [None]
  - LOSS OF CONSCIOUSNESS [None]
  - MALAISE [None]
  - OEDEMA [None]
  - RETINAL DETACHMENT [None]
  - SWELLING [None]
  - VISUAL DISTURBANCE [None]
  - VOMITING [None]
  - WEIGHT INCREASED [None]
